FAERS Safety Report 10642568 (Version 3)
Quarter: 2014Q4

REPORT INFORMATION
  Report Type: Report from Study
  Country: FI (occurrence: FI)
  Receive Date: 20141210
  Receipt Date: 20141216
  Transmission Date: 20150529
  Serious: Yes (Life-Threatening, Hospitalization, Other)
  Sender: FDA-Public Use
  Company Number: PHHY2014FI146547

PATIENT
  Age: 44 Year
  Sex: Male

DRUGS (3)
  1. LEPONEX [Suspect]
     Active Substance: CLOZAPINE
     Dosage: 25 MG, DAILY
     Route: 048
  2. LEPONEX [Suspect]
     Active Substance: CLOZAPINE
     Dosage: 450 MG, QD (TITRATED UP TO PREVIOUS TREATMENT DOSE )
     Route: 065
     Dates: end: 201411
  3. LEPONEX [Suspect]
     Active Substance: CLOZAPINE
     Indication: SCHIZOPHRENIA
     Dosage: 450 MG, QD
     Route: 065
     Dates: end: 201411

REACTIONS (10)
  - Pancreatitis [Unknown]
  - Hyponatraemia [Not Recovered/Not Resolved]
  - Psychotic disorder [Recovered/Resolved]
  - Gastrointestinal motility disorder [Unknown]
  - Megacolon [Unknown]
  - Ileus [Not Recovered/Not Resolved]
  - Impulse-control disorder [Recovered/Resolved]
  - Intestinal dilatation [Unknown]
  - Nervousness [Recovered/Resolved]
  - Constipation [Unknown]

NARRATIVE: CASE EVENT DATE: 2012
